FAERS Safety Report 13265698 (Version 2)
Quarter: 2017Q1

REPORT INFORMATION
  Report Type: Report from Study
  Country: US (occurrence: US)
  Receive Date: 20170223
  Receipt Date: 20170328
  Transmission Date: 20170428
  Serious: Yes (Hospitalization, Other)
  Sender: FDA-Public Use
  Company Number: US-JNJFOC-20170214744

PATIENT
  Age: 79 Year
  Sex: Male

DRUGS (11)
  1. TRADJENTA [Concomitant]
     Active Substance: LINAGLIPTIN
  2. CENTRUM SILVER [Concomitant]
     Active Substance: MINERALS\VITAMINS
  3. IMBRUVICA [Suspect]
     Active Substance: IBRUTINIB
     Indication: B-CELL SMALL LYMPHOCYTIC LYMPHOMA
     Route: 048
     Dates: start: 20170207, end: 20170222
  4. FINASTERIDE. [Concomitant]
     Active Substance: FINASTERIDE
  5. TORSEMIDE. [Concomitant]
     Active Substance: TORSEMIDE
  6. IMBRUVICA [Suspect]
     Active Substance: IBRUTINIB
     Indication: WALDENSTROM^S MACROGLOBULINAEMIA
     Route: 048
     Dates: start: 20170207, end: 20170222
  7. FERROUS FUMARATE [Concomitant]
     Active Substance: FERROUS FUMARATE
  8. IRON [Concomitant]
     Active Substance: IRON
  9. IMBRUVICA [Suspect]
     Active Substance: IBRUTINIB
     Indication: MANTLE CELL LYMPHOMA
     Route: 048
     Dates: start: 20170207, end: 20170222
  10. COREG [Concomitant]
     Active Substance: CARVEDILOL
  11. FLOMAX [Concomitant]
     Active Substance: TAMSULOSIN HYDROCHLORIDE

REACTIONS (11)
  - Dyspnoea [Unknown]
  - Loss of consciousness [Recovered/Resolved]
  - Pleural effusion [Recovered/Resolved with Sequelae]
  - Insomnia [Recovered/Resolved]
  - Cardiac failure congestive [Unknown]
  - Hallucination [Unknown]
  - Anxiety [Unknown]
  - Tachycardia [Unknown]
  - Atrial fibrillation [Recovered/Resolved with Sequelae]
  - Atrial flutter [Unknown]
  - Fall [Recovered/Resolved]

NARRATIVE: CASE EVENT DATE: 20170211
